FAERS Safety Report 7366434-0 (Version None)
Quarter: 2011Q1

REPORT INFORMATION
  Report Type: 
  Country: None (occurrence: None)
  Receive Date: 20110317
  Receipt Date: 20110317
  Transmission Date: 20110831
  Serious: No
  Sender: FDA-Public Use
  Company Number: None

PATIENT
  Age: 59 Year
  Sex: Female
  Weight: 55.3388 kg

DRUGS (1)
  1. CEFTAZIDIME [Suspect]
     Dosage: 2G EVERY 8 HOURS IV BOLUS
     Route: 040
     Dates: start: 20110301, end: 20110315

REACTIONS (1)
  - RASH [None]
